FAERS Safety Report 13336035 (Version 1)
Quarter: 2017Q1

REPORT INFORMATION
  Report Type: Spontaneous
  Country: US (occurrence: US)
  Receive Date: 20170315
  Receipt Date: 20170315
  Transmission Date: 20170428
  Serious: No
  Sender: FDA-Public Use
  Company Number: US-ELI_LILLY_AND_COMPANY-US201703003436

PATIENT
  Sex: Male

DRUGS (3)
  1. HUMULIN R U-500 [Suspect]
     Active Substance: INSULIN HUMAN
     Indication: TYPE 2 DIABETES MELLITUS
     Dosage: SLIDING SCALE WITH BREAKFAST AND SUPPER, PRN
     Route: 065
     Dates: start: 20170305
  2. BYDUREON [Concomitant]
     Active Substance: EXENATIDE
  3. TOUJEO [Concomitant]
     Active Substance: INSULIN GLARGINE

REACTIONS (3)
  - Blood glucose increased [Not Recovered/Not Resolved]
  - Drug dispensing error [Not Recovered/Not Resolved]
  - Incorrect dose administered [Not Recovered/Not Resolved]

NARRATIVE: CASE EVENT DATE: 201703
